FAERS Safety Report 5773090-1 (Version None)
Quarter: 2008Q2

REPORT INFORMATION
  Report Type: 
  Country: None (occurrence: None)
  Receive Date: 20080611
  Receipt Date: 20080602
  Transmission Date: 20081010
  Serious: Yes (Hospitalization, Other)
  Sender: FDA-Public Use
  Company Number: 2008AP001334

PATIENT
  Age: 70 Year
  Sex: Female

DRUGS (1)
  1. FLUPHENAZINE DECANOATE [Suspect]
     Dosage: ;IM
     Route: 030

REACTIONS (15)
  - AZOTAEMIA [None]
  - CARDIOGENIC SHOCK [None]
  - DYSARTHRIA [None]
  - DYSPHAGIA [None]
  - EJECTION FRACTION DECREASED [None]
  - GASTROINTESTINAL HAEMORRHAGE [None]
  - GRAND MAL CONVULSION [None]
  - HYPOCALCAEMIA [None]
  - LEFT VENTRICULAR DYSFUNCTION [None]
  - LEUKOCYTOSIS [None]
  - METABOLIC ACIDOSIS [None]
  - MYOCARDIAL INFARCTION [None]
  - NEUROLEPTIC MALIGNANT SYNDROME [None]
  - RESPIRATORY FAILURE [None]
  - SEPSIS [None]
